FAERS Safety Report 11242340 (Version 1)
Quarter: 2015Q3

REPORT INFORMATION
  Report Type: Spontaneous
  Country: US (occurrence: US)
  Receive Date: 20150707
  Receipt Date: 20150707
  Transmission Date: 20151125
  Serious: No
  Sender: FDA-Public Use
  Company Number: US-ASTRAZENECA-2013SE82393

PATIENT
  Age: 24703 Day
  Sex: Female

DRUGS (9)
  1. BYETTA [Suspect]
     Active Substance: EXENATIDE
     Indication: TYPE 2 DIABETES MELLITUS
     Route: 058
     Dates: start: 2005
  2. BYETTA [Suspect]
     Active Substance: EXENATIDE
     Indication: TYPE 2 DIABETES MELLITUS
     Dosage: 250 MCG / 2.4 ML PEN, 10 UG,  TWO TIMES A DAY
     Route: 058
  3. TENORMIN [Concomitant]
     Active Substance: ATENOLOL
  4. FISH OIL [Concomitant]
     Active Substance: FISH OIL
  5. SENSIPAR [Concomitant]
     Active Substance: CINACALCET HYDROCHLORIDE
  6. BYETTA [Suspect]
     Active Substance: EXENATIDE
     Indication: TYPE 2 DIABETES MELLITUS
     Route: 058
     Dates: start: 20070101
  7. BYETTA [Suspect]
     Active Substance: EXENATIDE
     Indication: TYPE 2 DIABETES MELLITUS
     Route: 058
     Dates: start: 20131020
  8. COZAAR [Concomitant]
     Active Substance: LOSARTAN POTASSIUM
  9. ADDERALL [Concomitant]
     Active Substance: AMPHETAMINE ASPARTATE\AMPHETAMINE SULFATE\DEXTROAMPHETAMINE SACCHARATE\DEXTROAMPHETAMINE SULFATE

REACTIONS (9)
  - Heart rate increased [Recovered/Resolved]
  - Oropharyngeal pain [Unknown]
  - Headache [Recovered/Resolved]
  - Feeling jittery [Recovered/Resolved]
  - Diabetes mellitus inadequate control [Unknown]
  - Drug ineffective [Unknown]
  - Influenza like illness [Recovered/Resolved]
  - Feeling abnormal [Unknown]
  - Intentional product misuse [Unknown]

NARRATIVE: CASE EVENT DATE: 20070101
